FAERS Safety Report 8129836-0 (Version None)
Quarter: 2012Q1

REPORT INFORMATION
  Report Type: 
  Country: None (occurrence: None)
  Receive Date: 20120210
  Receipt Date: 20120207
  Transmission Date: 20120608
  Serious: Yes (Other)
  Sender: FDA-Public Use
  Company Number: US-PFIZER INC-2012034121

PATIENT
  Sex: Male

DRUGS (1)
  1. XANAX [Suspect]
     Dosage: UNK
     Dates: start: 19860101

REACTIONS (4)
  - ANGER [None]
  - DEPENDENCE [None]
  - FEELING ABNORMAL [None]
  - DRUG INEFFECTIVE [None]
